FAERS Safety Report 8587178 (Version 2)
Quarter: 2013Q2

REPORT INFORMATION
  Report Type: Spontaneous
  Country: US (occurrence: US)
  Receive Date: 20120530
  Receipt Date: 20130430
  Transmission Date: 20140414
  Serious: Yes (Other)
  Sender: FDA-Public Use
  Company Number: CHPA2012US010896

PATIENT
  Age: 63 Year
  Sex: Male

DRUGS (2)
  1. 4 WAY FAST ACTING NASAL SPRAY [Suspect]
     Indication: DYSPNOEA
     Dosage: UNK, 2-3 TIMES PER NIGHT
     Route: 045
     Dates: start: 2002, end: 201201
  2. 4 WAY FAST ACTING NASAL SPRAY [Suspect]
     Indication: SINUS DISORDER

REACTIONS (5)
  - Drug dependence [Not Recovered/Not Resolved]
  - Joint injury [Not Recovered/Not Resolved]
  - Insomnia [Not Recovered/Not Resolved]
  - Off label use [Unknown]
  - Inappropriate schedule of drug administration [Unknown]
